FAERS Safety Report 12703677 (Version 2)
Quarter: 2016Q3

REPORT INFORMATION
  Report Type: Not Available
  Country: None (occurrence: US)
  Receive Date: 20160831
  Receipt Date: 20160831
  Transmission Date: 20161109
  Serious: No
  Sender: FDA-Public Use
  Company Number: US-AKORN-38310

PATIENT
  Age: 76 Year
  Sex: Male

DRUGS (1)
  1. LACTULOSE SOLUTION [Suspect]
     Active Substance: LACTULOSE

REACTIONS (2)
  - Abdominal pain upper [None]
  - Abdominal discomfort [None]
